FAERS Safety Report 4473785-6 (Version None)
Quarter: 2004Q3

REPORT INFORMATION
  Report Type: 
  Country: None (occurrence: None)
  Receive Date: 20040910
  Receipt Date: 20040614
  Transmission Date: 20050211
  Serious: No
  Sender: FDA-Public Use
  Company Number: 2004195061US

PATIENT
  Age: 82 Year
  Sex: Female
  Weight: 62.6 kg

DRUGS (9)
  1. BEXTRA [Suspect]
     Indication: OSTEOARTHRITIS
     Dosage: 10 MG, QD
     Dates: start: 20040210, end: 20040220
  2. BEXTRA [Suspect]
     Indication: OSTEOARTHRITIS
     Dosage: 10 MG, QD
     Dates: start: 20040515
  3. PHENOBARBITAL TAB [Concomitant]
  4. CARDENE [Concomitant]
  5. TRUSOPT [Concomitant]
  6. OCUPRESS [Concomitant]
  7. XALATAN [Concomitant]
  8. VOLTAREN [Concomitant]
  9. CENTRUM SILVER (RETINOL, VITAMINS NOS, VITAMIN B NOS) [Concomitant]

REACTIONS (3)
  - DIARRHOEA [None]
  - OESOPHAGEAL DISCOMFORT [None]
  - PRURITUS [None]
